FAERS Safety Report 15736915 (Version 4)
Quarter: 2019Q1

REPORT INFORMATION
  Report Type: Report from Study
  Country: US (occurrence: US)
  Receive Date: 20181218
  Receipt Date: 20190207
  Transmission Date: 20190417
  Serious: Yes (Hospitalization)
  Sender: FDA-Public Use
  Company Number: US-ACTELION-A-US2017-149285

PATIENT
  Age: 64 Year
  Sex: Male

DRUGS (7)
  1. SILDENAFIL. [Concomitant]
     Active Substance: SILDENAFIL
  2. VITAMIN D [Concomitant]
     Active Substance: CHOLECALCIFEROL
  3. OPSUMIT [Suspect]
     Active Substance: MACITENTAN
     Indication: PULMONARY ARTERIAL HYPERTENSION
     Dosage: 10 MG, QD
     Route: 048
     Dates: start: 20161021
  4. TOPROL XL [Concomitant]
     Active Substance: METOPROLOL SUCCINATE
  5. SPIRONOLACTONE. [Concomitant]
     Active Substance: SPIRONOLACTONE
     Indication: OEDEMA PERIPHERAL
  6. CLONIDINE. [Concomitant]
     Active Substance: CLONIDINE
  7. AMLODIPINE [Concomitant]
     Active Substance: AMLODIPINE BESYLATE

REACTIONS (12)
  - Oedema peripheral [Unknown]
  - End stage renal disease [Not Recovered/Not Resolved]
  - Visual impairment [Unknown]
  - Nasopharyngitis [Recovered/Resolved]
  - Fatigue [Recovered/Resolved]
  - Feeling cold [Unknown]
  - Vitamin D decreased [Unknown]
  - Product dose omission [Unknown]
  - Thrombotic microangiopathy [Unknown]
  - Pyrexia [Recovered/Resolved]
  - Dialysis [Unknown]
  - Dyspnoea [Recovered/Resolved]

NARRATIVE: CASE EVENT DATE: 201802
